FAERS Safety Report 19587563 (Version 1)
Quarter: 2021Q3

REPORT INFORMATION
  Report Type: Spontaneous
  Country: CN (occurrence: CN)
  Receive Date: 20210721
  Receipt Date: 20210721
  Transmission Date: 20211014
  Serious: Yes (Death, Other)
  Sender: FDA-Public Use
  Company Number: CN-SA-2021SA234578

PATIENT
  Age: 39 Year
  Sex: Male

DRUGS (2)
  1. ETHAMBUTOL [Concomitant]
     Active Substance: ETHAMBUTOL HYDROCHLORIDE
     Indication: LYMPH NODE TUBERCULOSIS
     Dosage: 750 MG, QD
  2. RIFAMPICIN [Suspect]
     Active Substance: RIFAMPIN
     Indication: LYMPH NODE TUBERCULOSIS
     Dosage: 900 MG

REACTIONS (13)
  - Hepatic function abnormal [Fatal]
  - Ocular icterus [Fatal]
  - Nausea [Fatal]
  - Vomiting [Fatal]
  - Oliguria [Fatal]
  - Coma [Fatal]
  - Decreased appetite [Fatal]
  - Melaena [Fatal]
  - Delirium [Fatal]
  - Toxicity to various agents [Fatal]
  - Somnolence [Fatal]
  - Fatigue [Fatal]
  - Overdose [Fatal]
